FAERS Safety Report 17292265 (Version 1)
Quarter: 2020Q1

REPORT INFORMATION
  Report Type: Report from Study
  Country: FR (occurrence: FR)
  Receive Date: 20200121
  Receipt Date: 20200121
  Transmission Date: 20200409
  Serious: Yes (Hospitalization)
  Sender: FDA-Public Use
  Company Number: FR-BAYER-2019-232399

PATIENT
  Age: 50 Year
  Sex: Male
  Weight: 56 kg

DRUGS (10)
  1. RAMIPRIL. [Concomitant]
     Active Substance: RAMIPRIL
  2. SPASFON LYOC [Concomitant]
     Active Substance: PHLOROGLUCINOL
  3. VOGALENE [Concomitant]
     Active Substance: METOPIMAZINE
  4. IRINOTECAN [Suspect]
     Active Substance: IRINOTECAN
     Dosage: 313 MG
     Dates: start: 20190724
  5. PANTOPRAZOLE [Concomitant]
     Active Substance: PANTOPRAZOLE
  6. MACROGOL;POTASSIUM CHLORIDE;SODIUM BICARBONATE;SODIUM CHLORIDE [Concomitant]
     Active Substance: POLYETHYLENE GLYCOL\POTASSIUM CHLORIDE\SODIUM BICARBONATE\SODIUM CHLORIDE
  7. ACTISKENAN [Concomitant]
     Active Substance: MORPHINE SULFATE
  8. MORPHINE [Concomitant]
     Active Substance: MORPHINE
  9. SODIUM BICARBONATE. [Concomitant]
     Active Substance: SODIUM BICARBONATE
  10. REGORAFENIB. [Suspect]
     Active Substance: REGORAFENIB
     Dosage: 160 MG
     Route: 048
     Dates: start: 20190725

REACTIONS (1)
  - Gastrointestinal perforation [Recovered/Resolved with Sequelae]

NARRATIVE: CASE EVENT DATE: 20190803
